FAERS Safety Report 19198362 (Version 4)
Quarter: 2021Q4

REPORT INFORMATION
  Report Type: Spontaneous
  Country: US (occurrence: US)
  Receive Date: 20210430
  Receipt Date: 20211012
  Transmission Date: 20220303
  Serious: Yes (Other)
  Sender: FDA-Public Use
  Company Number: US-SA-SAC20210428000927

PATIENT
  Age: 51 Year
  Sex: Female
  Weight: 65.7 kg

DRUGS (3)
  1. AUBAGIO [Suspect]
     Active Substance: TERIFLUNOMIDE
     Indication: Multiple sclerosis
     Dosage: 14 MG, QD
     Route: 048
     Dates: start: 20160229
  2. AUBAGIO [Suspect]
     Active Substance: TERIFLUNOMIDE
     Dosage: 14 MG, QD
     Route: 048
     Dates: start: 20180929
  3. LUNESTA [Concomitant]
     Active Substance: ESZOPICLONE

REACTIONS (3)
  - Brain neoplasm [Recovering/Resolving]
  - Multiple sclerosis [Unknown]
  - Balance disorder [Unknown]

NARRATIVE: CASE EVENT DATE: 20201201
